FAERS Safety Report 6125614-2 (Version None)
Quarter: 2009Q1

REPORT INFORMATION
  Report Type: 
  Country: None (occurrence: None)
  Receive Date: 20090320
  Receipt Date: 20090309
  Transmission Date: 20090719
  Serious: Yes (Death, Congenital Anomaly)
  Sender: FDA-Public Use
  Company Number: DE-ROCHE-588285

PATIENT
  Weight: 1.2 kg

DRUGS (6)
  1. VALGANCICLOVIR HCL [Suspect]
     Dosage: PTC TO 10 WEEKS
     Route: 064
     Dates: start: 20040101, end: 20060925
  2. SAQUINAVIR [Suspect]
     Dosage: 10 WEEKS TO DELIVERY AND UNSPECIFIED ROUTE
     Route: 064
     Dates: start: 20060925, end: 20070201
  3. SUSTIVA [Suspect]
     Dosage: TO CONTINUE (PTC) DRUG TO 10 WEEKS TO DELIVERY, DOSE: 1X6000
     Route: 064
     Dates: start: 20050101, end: 20060925
  4. COTRIMOXAZOLE [Suspect]
     Indication: PROPHYLAXIS
     Route: 064
     Dates: start: 20040101, end: 20060925
  5. COMBIVIR [Suspect]
     Route: 064
     Dates: start: 20040428
  6. NORVIR [Suspect]
     Dosage: 10 WEEKS TO DELIVERY
     Route: 064
     Dates: start: 20060925, end: 20070201

REACTIONS (8)
  - ANAL ATRESIA [None]
  - CONGENITAL CENTRAL NERVOUS SYSTEM ANOMALY [None]
  - CONGENITAL GENITOURINARY ABNORMALITY [None]
  - DEFORMITY [None]
  - FOOT DEFORMITY [None]
  - NEURAL TUBE DEFECT [None]
  - SOLITARY KIDNEY [None]
  - UROGENITAL DISORDER [None]
